FAERS Safety Report 16104494 (Version 6)
Quarter: 2020Q1

REPORT INFORMATION
  Report Type: Spontaneous
  Country: US (occurrence: US)
  Receive Date: 20190322
  Receipt Date: 20200131
  Transmission Date: 20200409
  Serious: No
  Sender: FDA-Public Use
  Company Number: US-PFIZER INC-2019118671

PATIENT
  Age: 77 Year
  Sex: Female
  Weight: 102 kg

DRUGS (6)
  1. GLYBURIDE. [Concomitant]
     Active Substance: GLYBURIDE
     Dosage: UNK (1:25 MG 1 PILL )
  2. FUROSEMIDE. [Concomitant]
     Active Substance: FUROSEMIDE
     Dosage: 20 MG, 1X/DAY
  3. ACETAMINOFEN + CODEINA [Concomitant]
     Indication: PAIN
     Dosage: UNK , AS NEEDED (#3 TABLET 1 PILL EVERY 6 HOURS A NEEDED)
     Dates: start: 19960120
  4. ALPRAZOLAM. [Concomitant]
     Active Substance: ALPRAZOLAM
     Dosage: 1 MG, 3X/DAY
     Dates: start: 199210
  5. XELJANZ XR [Suspect]
     Active Substance: TOFACITINIB CITRATE
     Indication: PSORIATIC ARTHROPATHY
     Dosage: 11 MG, UNK
  6. RAMIPRIL. [Concomitant]
     Active Substance: RAMIPRIL
     Dosage: UNK
     Dates: start: 199210

REACTIONS (6)
  - Anxiety [Not Recovered/Not Resolved]
  - Fluid retention [Not Recovered/Not Resolved]
  - Feeling hot [Unknown]
  - Nervousness [Not Recovered/Not Resolved]
  - Confusional state [Recovered/Resolved]
  - Renal disorder [Not Recovered/Not Resolved]
